FAERS Safety Report 8317382 (Version 2)
Quarter: 2012Q4

REPORT INFORMATION
  Report Type: 
  Country: US (occurrence: US)
  Receive Date: 20111230
  Receipt Date: 20121128
  Transmission Date: 20130627
  Serious: Yes (Congenital Anomaly, Other)
  Sender: FDA-Public Use
  Company Number: US-ELI_LILLY_AND_COMPANY-US201112006905

PATIENT
  Sex: Female

DRUGS (1)
  1. PROZAC [Suspect]
     Dosage: UNK
     Route: 064
     Dates: start: 1994, end: 19950704

REACTIONS (4)
  - Spina bifida [Unknown]
  - Talipes [Unknown]
  - Learning disability [Unknown]
  - Foetal exposure during pregnancy [Recovered/Resolved]
